FAERS Safety Report 4737865-X (Version None)
Quarter: 2005Q3

REPORT INFORMATION
  Report Type: 
  Country: None (occurrence: None)
  Receive Date: 20050808
  Receipt Date: 20050808
  Transmission Date: 20060218
  Serious: Yes (Hospitalization)
  Sender: FDA-Public Use
  Company Number: None

PATIENT
  Sex: Male
  Weight: 113.3993 kg

DRUGS (2)
  1. LEVOFLOXACIN [Suspect]
     Dosage: INHALED
     Route: 055
  2. BETHAMETH INH 0.8MG TWICE DAILY [Suspect]
     Dosage: INHALED

REACTIONS (2)
  - CEREBELLAR ATROPHY [None]
  - SPONDYLOLYSIS [None]
